FAERS Safety Report 9331592 (Version 1)
Quarter: 2013Q2

REPORT INFORMATION
  Report Type: Spontaneous
  Country: US (occurrence: US)
  Receive Date: 20130605
  Receipt Date: 20130605
  Transmission Date: 20140414
  Serious: No
  Sender: FDA-Public Use
  Company Number: US-ASTRAZENECA-2013SE38203

PATIENT
  Age: 84 Year
  Sex: Female
  Weight: 79.4 kg

DRUGS (4)
  1. FASLODEX [Suspect]
     Indication: BREAST CANCER METASTATIC
     Route: 030
     Dates: start: 2013
  2. SYNTHROID [Concomitant]
     Indication: THYROID DISORDER
     Dosage: 60 MCG DAILY
  3. VALIUM [Concomitant]
     Indication: ANXIETY DISORDER
  4. UNKNOWN ANXIETY MEDICATION [Concomitant]
     Indication: ANXIETY DISORDER

REACTIONS (2)
  - Urine odour abnormal [Unknown]
  - Vulvovaginal burning sensation [Not Recovered/Not Resolved]
